FAERS Safety Report 8886544 (Version 1)
Quarter: 2012Q4

REPORT INFORMATION
  Report Type: Report from Study
  Country: JP (occurrence: JP)
  Receive Date: 20121105
  Receipt Date: 20121105
  Transmission Date: 20130627
  Serious: Yes (Other)
  Sender: FDA-Public Use
  Company Number: PHHY2012JP100585

PATIENT

DRUGS (3)
  1. ACZ885 [Suspect]
     Indication: CRYOPYRIN ASSOCIATED PERIODIC SYNDROME
     Dosage: 600 mg, UNK
     Route: 058
     Dates: start: 20100107, end: 20120613
  2. ACZ885 [Suspect]
     Dosage: 300 mg, UNK
     Route: 058
     Dates: start: 20120807, end: 20120830
  3. ACZ885 [Suspect]
     Dosage: 500 mg, UNK
     Route: 058
     Dates: start: 20120927

REACTIONS (5)
  - Bronchitis [Recovered/Resolved]
  - Oropharyngeal pain [Recovered/Resolved]
  - Cough [Recovered/Resolved]
  - Pyrexia [Recovered/Resolved]
  - C-reactive protein increased [Recovered/Resolved]
